FAERS Safety Report 24260634 (Version 1)
Quarter: 2024Q3

REPORT INFORMATION
  Report Type: Spontaneous
  Country: TW (occurrence: TW)
  Receive Date: 20240828
  Receipt Date: 20240828
  Transmission Date: 20241017
  Serious: Yes (Other)
  Sender: INCYTE
  Company Number: TW-002147023-NVSC2024TW170744

PATIENT

DRUGS (1)
  1. RUXOLITINIB [Suspect]
     Active Substance: RUXOLITINIB
     Indication: Product used for unknown indication
     Dosage: UNK
     Route: 048
     Dates: start: 20231231

REACTIONS (2)
  - Acute leukaemia [Not Recovered/Not Resolved]
  - Embolism [Not Recovered/Not Resolved]
